FAERS Safety Report 7446278-1 (Version None)
Quarter: 2011Q2

REPORT INFORMATION
  Report Type: 
  Country: None (occurrence: None)
  Receive Date: 20110429
  Receipt Date: 20100527
  Transmission Date: 20111010
  Serious: No
  Sender: FDA-Public Use
  Company Number: US-ASTRAZENECA-2010SE22243

PATIENT
  Age: 61 Year
  Sex: Female
  Weight: 90.7 kg

DRUGS (4)
  1. XANAX [Concomitant]
     Dosage: PRN
  2. NEXIUM [Suspect]
     Indication: GASTROOESOPHAGEAL REFLUX DISEASE
     Route: 048
     Dates: start: 20010201
  3. VITAMINS [Concomitant]
  4. PAXIL [Concomitant]

REACTIONS (6)
  - INTENTIONAL DRUG MISUSE [None]
  - VITAMIN B12 DECREASED [None]
  - NAUSEA [None]
  - FATIGUE [None]
  - MACULAR DEGENERATION [None]
  - VITAMIN D DECREASED [None]
